FAERS Safety Report 15963618 (Version 9)
Quarter: 2019Q2

REPORT INFORMATION
  Report Type: Report from Study
  Country: IN (occurrence: IN)
  Receive Date: 20190214
  Receipt Date: 20190430
  Transmission Date: 20190711
  Serious: Yes (Life-Threatening, Hospitalization, Disabling, Other)
  Sender: FDA-Public Use
  Company Number: IN-PFIZER INC-2019069407

PATIENT
  Age: 44 Year
  Sex: Female

DRUGS (22)
  1. PLACEBO [Suspect]
     Active Substance: UNSPECIFIED INGREDIENT
     Indication: RHEUMATOID ARTHRITIS
     Dosage: 400 MG, EVERY TWO WEEKS
     Route: 058
  2. HCQS [Concomitant]
     Dosage: UNK
     Route: 065
     Dates: start: 20180105
  3. FOLITRAX [METHOTREXATE] [Concomitant]
     Dosage: UNK
     Route: 065
     Dates: start: 20190204
  4. RAZO [Concomitant]
     Dosage: UNK
     Route: 065
     Dates: start: 20180105, end: 20190203
  5. CALCIUM + VIT D [Concomitant]
     Active Substance: CALCIUM\VITAMIN D
     Dosage: UNK
     Route: 065
     Dates: start: 20190204
  6. ACITROM [Concomitant]
     Active Substance: ACENOCOUMAROL
     Dosage: UNK
     Route: 065
     Dates: start: 20190204
  7. ETOSHINE [Concomitant]
     Dosage: UNK
     Route: 065
     Dates: start: 20180105, end: 20190203
  8. PAN [Concomitant]
     Dosage: UNK
     Route: 065
     Dates: start: 20190204
  9. FOLIC ACID. [Concomitant]
     Active Substance: FOLIC ACID
     Dosage: UNK
     Route: 065
     Dates: start: 20180105
  10. DOLO [PARACETAMOL] [Concomitant]
     Dosage: UNK (650)
     Route: 065
     Dates: start: 20190204
  11. NORETHISTERONE ACETATE [Concomitant]
     Active Substance: NORETHINDRONE ACETATE
     Indication: MENORRHAGIA
     Dosage: UNK
     Route: 065
     Dates: start: 20180105
  12. CLEXANE [Concomitant]
     Active Substance: ENOXAPARIN SODIUM
     Dosage: UNK
     Route: 065
  13. FILGOTINIB [Suspect]
     Active Substance: FILGOTINIB
     Indication: RHEUMATOID ARTHRITIS
     Dosage: 200 MG/100 MG, 1X/DAY
     Route: 048
     Dates: start: 20180215
  14. IRON [Concomitant]
     Active Substance: IRON
     Indication: IRON DEFICIENCY ANAEMIA
     Dosage: UNK
     Route: 051
  15. FEVIT-Z [Concomitant]
     Dosage: UNK
     Route: 065
  16. METHOTREXATE SODIUM. [Suspect]
     Active Substance: METHOTREXATE SODIUM
     Dosage: 15 MG, WEEKLY
     Route: 048
     Dates: start: 20180218, end: 20190204
  17. FOLVITE MB [Concomitant]
     Dosage: UNK
     Route: 065
     Dates: start: 20180218
  18. WYSOLONE [Concomitant]
     Active Substance: PREDNISOLONE
     Dosage: UNK
     Route: 065
     Dates: start: 20180105
  19. METHOTREXATE SODIUM. [Suspect]
     Active Substance: METHOTREXATE SODIUM
     Indication: RHEUMATOID ARTHRITIS
     Dosage: 20 MG, UNK
     Route: 048
     Dates: start: 20180105
  20. LEVIPIL [Concomitant]
     Active Substance: LEVETIRACETAM
     Dosage: UNK
     Route: 065
     Dates: start: 20190204
  21. ULTRACET [Concomitant]
     Active Substance: ACETAMINOPHEN\TRAMADOL HYDROCHLORIDE
     Dosage: UNK
     Route: 065
     Dates: start: 20190204, end: 20190211
  22. FULCAL D [Concomitant]
     Dosage: UNK
     Route: 065

REACTIONS (2)
  - Hemiplegia [Not Recovered/Not Resolved]
  - Menorrhagia [Recovered/Resolved]

NARRATIVE: CASE EVENT DATE: 20190114
